FAERS Safety Report 6293233-3 (Version None)
Quarter: 2009Q3

REPORT INFORMATION
  Report Type: 
  Country: None (occurrence: None)
  Receive Date: 20090731
  Receipt Date: 20090729
  Transmission Date: 20100115
  Serious: Yes (Other)
  Sender: FDA-Public Use
  Company Number: CA-ALLERGAN-0910614US

PATIENT
  Sex: Female

DRUGS (1)
  1. LUMIGAN [Suspect]
     Indication: DRUG USE FOR UNKNOWN INDICATION
     Dosage: UNK, UNKNOWN
     Route: 047

REACTIONS (6)
  - BURNING SENSATION [None]
  - DERMATITIS [None]
  - INFLAMMATION [None]
  - OROPHARYNGEAL PAIN [None]
  - POSTNASAL DRIP [None]
  - SINUSITIS [None]
